FAERS Safety Report 10307084 (Version 1)
Quarter: 2014Q3

REPORT INFORMATION
  Report Type: Spontaneous
  Country: US (occurrence: US)
  Receive Date: 20140716
  Receipt Date: 20140716
  Transmission Date: 20150326
  Serious: Yes (Other)
  Sender: FDA-Public Use
  Company Number: US-009507513-1407USA006269

PATIENT
  Sex: Female

DRUGS (1)
  1. JANUVIA [Suspect]
     Active Substance: SITAGLIPTIN PHOSPHATE
     Indication: DIABETES MELLITUS
     Dosage: UNK
     Route: 048
     Dates: start: 201312

REACTIONS (7)
  - Pituitary tumour [Unknown]
  - Swelling face [Unknown]
  - Decreased appetite [Unknown]
  - Lip swelling [Unknown]
  - Blood growth hormone increased [Unknown]
  - Swollen tongue [Unknown]
  - Weight increased [Unknown]

NARRATIVE: CASE EVENT DATE: 201406
